FAERS Safety Report 8658027 (Version 2)
Quarter: 2012Q4

REPORT INFORMATION
  Report Type: 
  Country: US (occurrence: US)
  Receive Date: 20120710
  Receipt Date: 20120913
  Transmission Date: 20130627
  Serious: Yes (Hospitalization, Other)
  Sender: FDA-Public Use
  Company Number: US-BAYER-2012-067896

PATIENT
  Age: 19 Year
  Sex: Female
  Weight: 68.03 kg

DRUGS (2)
  1. YAZ [Suspect]
     Indication: CONTRACEPTION
     Dosage: UNK
     Dates: start: 2004, end: 20100625
  2. GIANVI [Suspect]
     Indication: CONTRACEPTION
     Dosage: UNK
     Dates: start: 20100625, end: 20100704

REACTIONS (7)
  - Deep vein thrombosis [None]
  - Phlebitis superficial [None]
  - Thrombosis [None]
  - Injury [None]
  - Pain in extremity [None]
  - Oedema peripheral [None]
  - Skin discolouration [None]
